FAERS Safety Report 5904935-X (Version None)
Quarter: 2008Q3

REPORT INFORMATION
  Report Type: 
  Country: None (occurrence: None)
  Receive Date: 20080909
  Receipt Date: 20080422
  Transmission Date: 20090109
  Serious: Yes (Death)
  Sender: FDA-Public Use
  Company Number: 163-20785-08031780

PATIENT
  Age: 88 Year
  Sex: Male

DRUGS (2)
  1. THALOMID [Suspect]
     Indication: CANCER PAIN
     Dosage: 100 MG, 1 IN 1 D, ORAL ; 50-100MG, DAILY, ORAL
     Route: 048
     Dates: start: 20070717, end: 20071101
  2. THALOMID [Suspect]
     Indication: CANCER PAIN
     Dosage: 100 MG, 1 IN 1 D, ORAL ; 50-100MG, DAILY, ORAL
     Route: 048
     Dates: start: 20071109, end: 20080207

REACTIONS (1)
  - MULTIPLE MYELOMA [None]
